FAERS Safety Report 5965615-8 (Version None)
Quarter: 2008Q4

REPORT INFORMATION
  Report Type: 
  Country: None (occurrence: None)
  Receive Date: 20081125
  Receipt Date: 20081117
  Transmission Date: 20090506
  Serious: Yes (Hospitalization)
  Sender: FDA-Public Use
  Company Number: US-GENENTECH-255507

PATIENT
  Age: 56 Year
  Sex: Female
  Weight: 64 kg

DRUGS (3)
  1. BEVACIZUMAB [Suspect]
     Indication: PANCREATIC CARCINOMA METASTATIC
     Dosage: 630 MG, Q2W
     Route: 042
     Dates: start: 20070628, end: 20080110
  2. GEMCITABINE HCL [Concomitant]
     Indication: PANCREATIC CARCINOMA METASTATIC
     Dosage: UNK, Q2W
     Route: 065
     Dates: start: 20070628, end: 20080110
  3. DOCETAXEL [Concomitant]
     Indication: PANCREATIC CARCINOMA METASTATIC
     Dosage: UNK, Q2W
     Route: 065
     Dates: start: 20070628, end: 20080110

REACTIONS (3)
  - DYSPNOEA [None]
  - FALL [None]
  - PLEURAL EFFUSION [None]
